FAERS Safety Report 19542028 (Version 2)
Quarter: 2021Q4

REPORT INFORMATION
  Report Type: Spontaneous
  Country: CH (occurrence: None)
  Receive Date: 20210713
  Receipt Date: 20211207
  Transmission Date: 20220303
  Serious: Yes (Other)
  Sender: FDA-Public Use
  Company Number: CH-ROCHE-2866624

PATIENT
  Sex: Male

DRUGS (14)
  1. RITUXIMAB [Suspect]
     Active Substance: RITUXIMAB
     Indication: Diffuse large B-cell lymphoma
     Route: 065
     Dates: start: 20190806, end: 20191129
  2. OBINUTUZUMAB [Suspect]
     Active Substance: OBINUTUZUMAB
     Indication: Diffuse large B-cell lymphoma
     Route: 042
     Dates: start: 20200609, end: 20200713
  3. OBINUTUZUMAB [Suspect]
     Active Substance: OBINUTUZUMAB
     Route: 042
     Dates: start: 20210716
  4. VENETOCLAX [Suspect]
     Active Substance: VENETOCLAX
     Indication: Diffuse large B-cell lymphoma
     Route: 048
     Dates: start: 20210527
  5. GLOFITAMAB [Concomitant]
     Active Substance: GLOFITAMAB
     Route: 065
     Dates: start: 20210722
  6. CYCLOPHOSPHAMIDE [Concomitant]
     Active Substance: CYCLOPHOSPHAMIDE
     Dates: start: 20190806, end: 20191129
  7. DOXORUBICIN [Concomitant]
     Active Substance: DOXORUBICIN
     Dates: start: 20190806, end: 20191129
  8. VINCRISTINE [Concomitant]
     Active Substance: VINCRISTINE
     Dates: start: 20190806, end: 20191129
  9. PREDNISOLONE [Concomitant]
     Active Substance: PREDNISOLONE
     Dates: start: 20190806, end: 20191129
  10. GEMCITABINE [Concomitant]
     Active Substance: GEMCITABINE
     Dates: start: 20200609, end: 20200713
  11. DEXAMETHASONE [Concomitant]
     Active Substance: DEXAMETHASONE
     Dates: start: 20200609, end: 20200713
  12. CISPLATIN [Concomitant]
     Active Substance: CISPLATIN
     Dates: start: 20200609, end: 20200713
  13. KYMRIAH [Concomitant]
     Active Substance: TISAGENLECLEUCEL
     Dates: start: 20210317
  14. LENALIDOMIDE [Concomitant]
     Active Substance: LENALIDOMIDE

REACTIONS (3)
  - Haemolysis [Unknown]
  - Disease progression [Unknown]
  - Drug ineffective [Unknown]
